FAERS Safety Report 8536921-8 (Version None)
Quarter: 2012Q3

REPORT INFORMATION
  Report Type: 
  Country: None (occurrence: None)
  Receive Date: 20120718
  Receipt Date: 20120718
  Transmission Date: 20120928
  Serious: Yes (Hospitalization)
  Sender: FDA-Public Use
  Company Number: None

PATIENT
  Age: 52 Year
  Sex: Male
  Weight: 107.5 kg

DRUGS (2)
  1. LISINOPRIL [Suspect]
     Indication: HYPERTENSION
     Dosage: 20 MG EVERY DAY PO
     Route: 048
     Dates: start: 20090923, end: 20120704
  2. LISINOPRIL [Suspect]
     Indication: DIABETES MELLITUS
     Dosage: 20 MG EVERY DAY PO
     Route: 048
     Dates: start: 20090923, end: 20120704

REACTIONS (7)
  - TONSILLAR INFLAMMATION [None]
  - ANGIOEDEMA [None]
  - DYSPNOEA [None]
  - OROPHARYNGEAL PAIN [None]
  - PALATAL OEDEMA [None]
  - DYSPHAGIA [None]
  - PHARYNGEAL OEDEMA [None]
